FAERS Safety Report 23299117 (Version 1)
Quarter: 2023Q4

REPORT INFORMATION
  Report Type: Spontaneous
  Country: US (occurrence: US)
  Receive Date: 20231215
  Receipt Date: 20231215
  Transmission Date: 20240109
  Serious: Yes (Other)
  Sender: FDA-Public Use
  Company Number: ENDB23-02417

PATIENT
  Sex: Male

DRUGS (2)
  1. XIAFLEX [Suspect]
     Active Substance: COLLAGENASE CLOSTRIDIUM HISTOLYTICUM
     Indication: Peyronie^s disease
     Dosage: 0.58 MG, UNKNOWN (FIRST INJECTION)
     Route: 051
     Dates: start: 2023
  2. XIAFLEX [Suspect]
     Active Substance: COLLAGENASE CLOSTRIDIUM HISTOLYTICUM
     Dosage: 0.58 MG, UNKNOWN
     Route: 051
     Dates: start: 20230814

REACTIONS (3)
  - Syncope [Unknown]
  - Flushing [Unknown]
  - Swelling [Unknown]

NARRATIVE: CASE EVENT DATE: 20230101
